FAERS Safety Report 6801931-5 (Version None)
Quarter: 2010Q2

REPORT INFORMATION
  Report Type: 
  Country: None (occurrence: None)
  Receive Date: 20100629
  Receipt Date: 20100622
  Transmission Date: 20101027
  Serious: Yes (Other)
  Sender: FDA-Public Use
  Company Number: CHPA2010GB09695

PATIENT
  Age: 76 Year
  Sex: Female

DRUGS (3)
  1. NICOTINELL TTS (NCH) [Suspect]
     Indication: SMOKING CESSATION THERAPY
     Dosage: 7 MG, QD
     Route: 062
     Dates: start: 20100529, end: 20100601
  2. NICOTINE BITARTRATE (NCH) [Suspect]
     Dosage: UNK, UNK
  3. ^(S)-(-)-NICOTINE^ [Suspect]
     Dosage: UNK, UNK

REACTIONS (1)
  - SWELLING FACE [None]
